FAERS Safety Report 15542128 (Version 1)
Quarter: 2018Q4

REPORT INFORMATION
  Report Type: Spontaneous
  Country: US (occurrence: US)
  Receive Date: 20181023
  Receipt Date: 20181023
  Transmission Date: 20190205
  Serious: Yes (Hospitalization, Other)
  Sender: FDA-Public Use
  Company Number: US-BAYER-2018-192772

PATIENT
  Age: 35 Year
  Sex: Male

DRUGS (2)
  1. CLINDAMYCIN. [Concomitant]
     Active Substance: CLINDAMYCIN
     Indication: PERIORBITAL CELLULITIS
     Dosage: 600 MG, UNK
     Route: 042
  2. CIPROFLOXACIN BETAIN [Suspect]
     Active Substance: CIPROFLOXACIN
     Indication: PERIORBITAL CELLULITIS
     Dosage: 400 MG, BID
     Route: 042

REACTIONS (1)
  - Drug-induced liver injury [Recovered/Resolved]
